FAERS Safety Report 9263357 (Version 1)
Quarter: 2013Q1

REPORT INFORMATION
  Report Type: Spontaneous
  Country: US (occurrence: None)
  Receive Date: 20121212
  Receipt Date: 20121212
  Transmission Date: 20140127
  Serious: No
  Sender: FDA-Public Use
  Company Number: 1210USA014228

PATIENT
  Age: 61 Year
  Sex: Female

DRUGS (3)
  1. VICTRELIS [Suspect]
     Dates: start: 20121015
  2. PEGASYS [Suspect]
  3. RIBASPHERE [Suspect]

REACTIONS (6)
  - Dyspnoea [None]
  - Pruritus [None]
  - Fatigue [None]
  - Asthenia [None]
  - Dizziness [None]
  - Rash [None]
